FAERS Safety Report 6355540-5 (Version None)
Quarter: 2009Q3

REPORT INFORMATION
  Report Type: 
  Country: None (occurrence: None)
  Receive Date: 20090914
  Receipt Date: 20090910
  Transmission Date: 20100115
  Serious: Yes (Death, Hospitalization)
  Sender: FDA-Public Use
  Company Number: PHHY2009CA37308

PATIENT
  Sex: Male

DRUGS (7)
  1. CLOZARIL [Suspect]
     Indication: SCHIZOPHRENIA
     Dosage: UNK
     Route: 048
     Dates: start: 20040517, end: 20090902
  2. CLOZARIL [Suspect]
     Indication: PARANOIA
     Dosage: 50 MG, QHS
     Route: 048
     Dates: start: 20040501, end: 20090701
  3. CLOZARIL [Suspect]
     Indication: HALLUCINATION
  4. SINEMET [Concomitant]
     Dosage: UNK
  5. SINEMET CR [Concomitant]
     Dosage: UNK
  6. FIORINAL [Concomitant]
     Dosage: 0.1 MG, BID
  7. MIDODRINE HYDROCHLORIDE [Concomitant]
     Dosage: 2.5 MG, TID

REACTIONS (3)
  - DEATH [None]
  - DEPRESSED LEVEL OF CONSCIOUSNESS [None]
  - PNEUMONIA ASPIRATION [None]
